FAERS Safety Report 9933164 (Version 1)
Quarter: 2014Q1

REPORT INFORMATION
  Report Type: Spontaneous
  Country: US (occurrence: US)
  Receive Date: 20140228
  Receipt Date: 20140228
  Transmission Date: 20141002
  Serious: Yes (Hospitalization)
  Sender: FDA-Public Use
  Company Number: US-JNJFOC-20140214043

PATIENT
  Age: 63 Year
  Sex: Female

DRUGS (3)
  1. INVOKANA [Suspect]
     Indication: PRODUCT USED FOR UNKNOWN INDICATION
     Route: 048
  2. METFORMIN [Concomitant]
  3. BLOOD PRESSURE MEDICATION NOS [Concomitant]

REACTIONS (3)
  - Renal failure [Unknown]
  - Urinary tract infection [Unknown]
  - Creatinine renal clearance decreased [Unknown]
